FAERS Safety Report 8153118-4 (Version None)
Quarter: 2012Q1

REPORT INFORMATION
  Report Type: 
  Country: None (occurrence: None)
  Receive Date: 20120221
  Receipt Date: 20120208
  Transmission Date: 20120608
  Serious: Yes (Life-Threatening)
  Sender: FDA-Public Use
  Company Number: JP-UCBSA-051050

PATIENT
  Age: 74 Year
  Sex: Female
  Weight: 44.8 kg

DRUGS (2)
  1. KEPPRA [Suspect]
     Indication: EPILEPSY
     Route: 048
     Dates: start: 20111213, end: 20120106
  2. ZONISAMIDE [Concomitant]
     Dosage: DAILY DOSE: 100 MG
     Route: 048

REACTIONS (1)
  - NEUTROPHIL COUNT DECREASED [None]
